FAERS Safety Report 10078443 (Version 1)
Quarter: 2014Q2

REPORT INFORMATION
  Report Type: Spontaneous
  Country: GB (occurrence: None)
  Receive Date: 20140404
  Receipt Date: 20140404
  Transmission Date: 20141212
  Serious: Yes (Other)
  Sender: FDA-Public Use
  Company Number: NGX_01927_2013

PATIENT
  Age: 61 Year
  Sex: Male
  Weight: 97.5 kg

DRUGS (10)
  1. STUDY DRUG [Suspect]
     Indication: DIABETIC NEUROPATHY
     Dosage: DF STANDARD OF CARE ONCE A MONTH TOPICAL
  2. ATORVASTATIN [Concomitant]
  3. ATENOLOL [Concomitant]
  4. BEADROFLUMETHIAZIDE [Concomitant]
  5. METFORMIN [Concomitant]
  6. PARACETAMOL [Concomitant]
  7. CLONIL MODULITE [Concomitant]
  8. DOXAZOSIN [Concomitant]
  9. AMITRIPTYLINE [Concomitant]
  10. RAMIPRIL [Concomitant]

REACTIONS (1)
  - Cardiac murmur [None]
